FAERS Safety Report 7436339-5 (Version None)
Quarter: 2011Q2

REPORT INFORMATION
  Report Type: 
  Country: None (occurrence: None)
  Receive Date: 20110426
  Receipt Date: 20110418
  Transmission Date: 20111010
  Serious: No
  Sender: FDA-Public Use
  Company Number: US-BIOGENIDEC-2010BI013556

PATIENT
  Age: 60 Year
  Sex: Female

DRUGS (1)
  1. TYSABRI [Suspect]
     Indication: MULTIPLE SCLEROSIS
     Route: 042
     Dates: start: 20091117

REACTIONS (12)
  - URINARY TRACT INFECTION [None]
  - POLLAKIURIA [None]
  - BLOOD PRESSURE INCREASED [None]
  - DECREASED APPETITE [None]
  - WEIGHT DECREASED [None]
  - HYPERREFLEXIA [None]
  - DRUG EFFECT DECREASED [None]
  - DYSURIA [None]
  - HEART RATE DECREASED [None]
  - TACHYCARDIA [None]
  - DIARRHOEA [None]
  - FATIGUE [None]
